FAERS Safety Report 17149909 (Version 1)
Quarter: 2019Q4

REPORT INFORMATION
  Report Type: Spontaneous
  Country: NL (occurrence: NL)
  Receive Date: 20191213
  Receipt Date: 20191213
  Transmission Date: 20200122
  Serious: Yes (Other)
  Sender: FDA-Public Use
  Company Number: NL-ASPEN-GLO2016NL004787

PATIENT
  Sex: Female

DRUGS (2)
  1. DEXAMETHASONE. [Suspect]
     Active Substance: DEXAMETHASONE
     Indication: ATRIOVENTRICULAR BLOCK
     Dosage: UNK UNK, QD
     Route: 048
  2. DEXAMETHASONE. [Suspect]
     Active Substance: DEXAMETHASONE
     Dosage: INITIAL DOSE OF 8 MG/D RANGE: 2 MG-16 MG/D
     Route: 065

REACTIONS (3)
  - Psychotic disorder [Unknown]
  - Substance-induced psychotic disorder [Unknown]
  - Maternal exposure during pregnancy [Unknown]
